FAERS Safety Report 5257202-4 (Version None)
Quarter: 2007Q1

REPORT INFORMATION
  Report Type: 
  Country: None (occurrence: None)
  Receive Date: 20070307
  Receipt Date: 20070227
  Transmission Date: 20070707
  Serious: Yes (Other)
  Sender: FDA-Public Use
  Company Number: ZA-GLAXOSMITHKLINE-B0459964A

PATIENT
  Age: 33 Year
  Sex: Female

DRUGS (2)
  1. ZYBAN [Suspect]
     Dosage: 150MG UNKNOWN
     Route: 048
     Dates: start: 20070208, end: 20070211
  2. KLACID XL [Suspect]
     Route: 065

REACTIONS (6)
  - COGNITIVE DISORDER [None]
  - DIPLOPIA [None]
  - DISTURBANCE IN ATTENTION [None]
  - DRUG INTERACTION [None]
  - INSOMNIA [None]
  - PHARMACEUTICAL PRODUCT COMPLAINT [None]
